FAERS Safety Report 16998038 (Version 1)
Quarter: 2019Q4

REPORT INFORMATION
  Report Type: Spontaneous
  Country: US (occurrence: US)
  Receive Date: 20190924
  Receipt Date: 20190924
  Transmission Date: 20200122
  Serious: Yes (Hospitalization)
  Sender: FDA-Public Use
  Company Number: None

PATIENT
  Age: 60 Year
  Sex: Male
  Weight: 90 kg

DRUGS (1)
  1. ADALIMUMAB [Suspect]
     Active Substance: ADALIMUMAB
     Indication: COLITIS ULCERATIVE
     Dosage: ?          OTHER FREQUENCY:OTHER;?
     Route: 042
     Dates: start: 20190503, end: 20190707

REACTIONS (5)
  - Haemoptysis [None]
  - Coronary artery disease [None]
  - Fluid overload [None]
  - Cardiac failure congestive [None]
  - Diarrhoea [None]

NARRATIVE: CASE EVENT DATE: 20190503
